FAERS Safety Report 7438007-2 (Version None)
Quarter: 2011Q2

REPORT INFORMATION
  Report Type: 
  Country: None (occurrence: None)
  Receive Date: 20110426
  Receipt Date: 20110415
  Transmission Date: 20111010
  Serious: Yes (Other)
  Sender: FDA-Public Use
  Company Number: US-JNJFOC-20110407600

PATIENT
  Sex: Female
  Weight: 81.19 kg

DRUGS (2)
  1. ENALAPRIL [Concomitant]
     Indication: HYPERTENSION
     Route: 048
  2. TOPAMAX [Suspect]
     Indication: MIGRAINE PROPHYLAXIS
     Route: 048

REACTIONS (9)
  - DYSGEUSIA [None]
  - DECREASED APPETITE [None]
  - ABNORMAL LOSS OF WEIGHT [None]
  - VITAMIN D DEFICIENCY [None]
  - GASTRITIS [None]
  - CAROTID ARTERY OCCLUSION [None]
  - PRODUCT ODOUR ABNORMAL [None]
  - GASTROOESOPHAGEAL REFLUX DISEASE [None]
  - DIARRHOEA [None]
